FAERS Safety Report 6460715-0 (Version None)
Quarter: 2009Q4

REPORT INFORMATION
  Report Type: 
  Country: None (occurrence: None)
  Receive Date: 20091123
  Receipt Date: 20091110
  Transmission Date: 20100525
  Serious: Yes (Other)
  Sender: FDA-Public Use
  Company Number: AE09-015B

PATIENT
  Sex: Male

DRUGS (4)
  1. LORCET-HD [Suspect]
     Dosage: INTRA-NASAL
  2. VICODIN [Suspect]
     Dosage: INTRA-NASAL
  3. PERCOCET [Suspect]
     Dosage: INTRA-NASAL
  4. TYLOX [Suspect]
     Dosage: 5 PILLS, INTRA-NASAL

REACTIONS (7)
  - DRUG ABUSE [None]
  - DRUG SCREEN POSITIVE [None]
  - ENTEROCOCCAL INFECTION [None]
  - INCORRECT ROUTE OF DRUG ADMINISTRATION [None]
  - KLEBSIELLA INFECTION [None]
  - MULTIPLE DRUG OVERDOSE INTENTIONAL [None]
  - NASAL NECROSIS [None]
